FAERS Safety Report 5588448-3 (Version None)
Quarter: 2008Q1

REPORT INFORMATION
  Report Type: 
  Country: None (occurrence: None)
  Receive Date: 20080111
  Receipt Date: 20080109
  Transmission Date: 20080703
  Serious: Yes (Other)
  Sender: FDA-Public Use
  Company Number: US-MERCK-0801USA01609

PATIENT

DRUGS (2)
  1. NARCAN [Suspect]
     Route: 065
  2. MAXALT [Suspect]
     Route: 065

REACTIONS (3)
  - CONVULSION [None]
  - DRUG INTERACTION [None]
  - ELECTROCARDIOGRAM T WAVE INVERSION [None]
